FAERS Safety Report 8051050-8 (Version None)
Quarter: 2012Q1

REPORT INFORMATION
  Report Type: 
  Country: None (occurrence: None)
  Receive Date: 20120117
  Receipt Date: 20120111
  Transmission Date: 20120608
  Serious: Yes (Death, Hospitalization)
  Sender: FDA-Public Use
  Company Number: PHHY2012FR001228

PATIENT
  Age: 79 Year
  Sex: Male

DRUGS (4)
  1. MODOPAR [Concomitant]
  2. LERCANIDIPINE [Concomitant]
  3. RASILEZ [Suspect]
     Indication: HYPERTENSION
     Dosage: 1 DF, QD
     Route: 048
  4. PREVISCAN [Concomitant]
     Indication: ATRIAL FIBRILLATION

REACTIONS (3)
  - SPINAL CORD COMPRESSION [None]
  - DEATH [None]
  - FALL [None]
